FAERS Safety Report 10311041 (Version 4)
Quarter: 2016Q4

REPORT INFORMATION
  Report Type: Spontaneous
  Country: US (occurrence: US)
  Receive Date: 20140717
  Receipt Date: 20161214
  Transmission Date: 20170206
  Serious: Yes (Other)
  Sender: FDA-Public Use
  Company Number: US-PFIZER INC-2014198927

PATIENT
  Age: 67 Year
  Sex: Male

DRUGS (2)
  1. VIAGRA [Suspect]
     Active Substance: SILDENAFIL CITRATE
     Indication: ORGANIC ERECTILE DYSFUNCTION
     Dosage: 100 MG DAILY AS NEEDED 30 MINUTE TO 4 HOURS BEFORE SEXUAL ACTIVITY (MAX DOSE IS 100 MG IN 24 HOURS)
     Route: 048
     Dates: start: 20161130
  2. VIAGRA [Suspect]
     Active Substance: SILDENAFIL CITRATE
     Indication: ERECTILE DYSFUNCTION
     Dosage: 100 MG ONCE A DAY NEED BEFORE SEX
     Dates: start: 201102

REACTIONS (2)
  - Arthropathy [Recovered/Resolved]
  - Arthralgia [Recovered/Resolved]
